FAERS Safety Report 26121338 (Version 1)
Quarter: 2025Q4

REPORT INFORMATION
  Report Type: Spontaneous
  Country: US (occurrence: None)
  Receive Date: 20251203
  Receipt Date: 20251203
  Transmission Date: 20260118
  Serious: Yes (Life-Threatening, Hospitalization, Other)
  Sender: FDA-CTU
  Company Number: None

PATIENT
  Age: 65 Year
  Sex: Male
  Weight: 75 kg

DRUGS (1)
  1. CARVYKTI [Suspect]
     Active Substance: CILTACABTAGENE AUTOLEUCEL
     Indication: Plasma cell myeloma
     Dosage: OTHER FREQUENCY : ONCE;?
     Route: 042
     Dates: start: 20250616, end: 20250616

REACTIONS (16)
  - Cytokine release syndrome [None]
  - Sinus node dysfunction [None]
  - Immune effector cell-associated neurotoxicity syndrome [None]
  - Encephalopathy [None]
  - Toxicity to various agents [None]
  - Neutropenia [None]
  - Dysuria [None]
  - Pyrexia [None]
  - Blood culture positive [None]
  - Bacterial infection [None]
  - Transfusion [None]
  - Pseudomonas infection [None]
  - Urinary tract infection [None]
  - Cerebral atrophy [None]
  - Cerebral microangiopathy [None]
  - Hypertension [None]

NARRATIVE: CASE EVENT DATE: 20250720
